FAERS Safety Report 13234558 (Version 2)
Quarter: 2017Q2

REPORT INFORMATION
  Report Type: Spontaneous
  Country: US (occurrence: US)
  Receive Date: 20170215
  Receipt Date: 20170404
  Transmission Date: 20170830
  Serious: No
  Sender: FDA-Public Use
  Company Number: US-PFIZER INC-2017059545

PATIENT
  Sex: Female

DRUGS (2)
  1. XELJANZ XR [Suspect]
     Active Substance: TOFACITINIB CITRATE
     Dosage: 11 MG, UNK
  2. LEFLUNOMIDE. [Concomitant]
     Active Substance: LEFLUNOMIDE
     Dosage: UNK

REACTIONS (13)
  - Arthralgia [Unknown]
  - Joint swelling [Unknown]
  - Myalgia [Unknown]
  - Back pain [Unknown]
  - Dermatitis [Unknown]
  - Weight decreased [Unknown]
  - Pruritus [Unknown]
  - Oedema peripheral [Unknown]
  - Rash [Unknown]
  - Sleep disorder [Unknown]
  - Tryptase increased [Unknown]
  - Dry skin [Unknown]
  - Fatigue [Unknown]
